FAERS Safety Report 20894322 (Version 4)
Quarter: 2022Q2

REPORT INFORMATION
  Report Type: Spontaneous
  Country: DE (occurrence: DE)
  Receive Date: 20220531
  Receipt Date: 20220620
  Transmission Date: 20220721
  Serious: Yes (Life-Threatening, Hospitalization)
  Sender: FDA-Public Use
  Company Number: DE-BAYER-2022A073223

PATIENT
  Age: 78 Year
  Sex: Male
  Weight: 93 kg

DRUGS (11)
  1. GADOBUTROL [Suspect]
     Active Substance: GADOBUTROL
     Indication: Magnetic resonance imaging heart
     Dosage: UNK, ONCE, 1.5ML/S
     Route: 042
     Dates: start: 20220505
  2. MARCUMAR [Concomitant]
     Active Substance: PHENPROCOUMON
     Indication: Anticoagulant therapy
     Dosage: 4 MG, PRN
  3. CLOPIDOGREL BISULFATE [Concomitant]
     Active Substance: CLOPIDOGREL BISULFATE
     Indication: Anticoagulant therapy
     Dosage: 75 MG, QD, 1-0-0
  4. BISOPROLOL [Concomitant]
     Active Substance: BISOPROLOL
     Indication: Blood pressure measurement
     Dosage: 1.25 MG
  5. TORSEMIDE [Concomitant]
     Active Substance: TORSEMIDE
     Indication: Blood pressure measurement
     Dosage: 10 MG, BID, EVERY 12 HOURS, 1-0-1
  6. RANOLAZINE [Concomitant]
     Active Substance: RANOLAZINE
     Indication: Angina pectoris
     Dosage: 750 MG, BID, EVERY 12 HOURS
  7. ATORVASTATIN [Concomitant]
     Active Substance: ATORVASTATIN
     Indication: Blood cholesterol
     Dosage: 60 MG, QD, 0-0-1
  8. OMEPRAZOLE [Concomitant]
     Active Substance: OMEPRAZOLE
     Indication: Gastrointestinal disorder prophylaxis
     Dosage: 20 MG, QD, 0-0-0-1
  9. MYCOPHENOLAT 1A PHARMA [Concomitant]
     Indication: Systemic lupus erythematosus
     Dosage: 1500 MG, QD, 500MG 2-0-1
  10. TESTOSTERON [TESTOSTERONE PROPIONATE] [Concomitant]
     Indication: Klinefelter^s syndrome
     Dosage: 250 MG, EVERY 3 WEEKS
  11. CHOLECALCIFEROL [Concomitant]
     Active Substance: CHOLECALCIFEROL
     Indication: Osteoporosis
     Dosage: 20 IU, OW

REACTIONS (10)
  - Dyspnoea [Recovered/Resolved]
  - Increased upper airway secretion [Recovered/Resolved]
  - Cardiovascular disorder [Recovered/Resolved]
  - Pulse absent [Recovered/Resolved]
  - Unresponsive to stimuli [Recovered/Resolved]
  - Blood pressure abnormal [Recovered/Resolved]
  - Product quality issue [None]
  - Hypotension [Recovered/Resolved]
  - Vomiting [Recovered/Resolved]
  - Metabolic acidosis [Recovered/Resolved]

NARRATIVE: CASE EVENT DATE: 20220505
